FAERS Safety Report 4309651-6 (Version None)
Quarter: 2004Q1

REPORT INFORMATION
  Report Type: 
  Country: None (occurrence: None)
  Receive Date: 20040301
  Receipt Date: 20040217
  Transmission Date: 20041129
  Serious: Yes (Hospitalization)
  Sender: FDA-Public Use
  Company Number: 2004199814JP

PATIENT
  Age: 50 Year
  Sex: Male

DRUGS (5)
  1. SOLU-CORTEF [Suspect]
     Indication: GASTROENTERITIS
     Dosage: SEE IMAGE
     Route: 042
     Dates: start: 20040212, end: 20040212
  2. SOLU-CORTEF [Suspect]
     Indication: GASTROENTERITIS
     Dosage: SEE IMAGE
     Route: 042
     Dates: start: 20040204
  3. MINOCYCLINE HYDROCHLORIDE [Suspect]
  4. GLUCOSE [Concomitant]
  5. C-PARA (VITAMINS NOS) [Concomitant]

REACTIONS (4)
  - BLOOD PRESSURE DECREASED [None]
  - CYANOSIS [None]
  - HEART RATE DECREASED [None]
  - SHOCK [None]
